FAERS Safety Report 17397876 (Version 1)
Quarter: 2020Q1

REPORT INFORMATION
  Report Type: Spontaneous
  Country: US (occurrence: US)
  Receive Date: 20200210
  Receipt Date: 20200210
  Transmission Date: 20200409
  Serious: Yes (Other)
  Sender: FDA-Public Use
  Company Number: US-AMGEN-USASP2020020291

PATIENT
  Age: 67 Year
  Sex: Female

DRUGS (1)
  1. PROLIA [Suspect]
     Active Substance: DENOSUMAB
     Indication: OSTEOPOROSIS POSTMENOPAUSAL
     Dosage: 60 MILLIGRAM, Q6MO
     Route: 065

REACTIONS (5)
  - Tongue movement disturbance [Not Recovered/Not Resolved]
  - Exposed bone in jaw [Not Recovered/Not Resolved]
  - Gingival pain [Not Recovered/Not Resolved]
  - Oral pain [Not Recovered/Not Resolved]
  - Feeling abnormal [Not Recovered/Not Resolved]

NARRATIVE: CASE EVENT DATE: 202001
